FAERS Safety Report 4449965-2 (Version None)
Quarter: 2004Q3

REPORT INFORMATION
  Report Type: 
  Country: None (occurrence: None)
  Receive Date: 20040803
  Receipt Date: 20030722
  Transmission Date: 20050211
  Serious: No
  Sender: FDA-Public Use
  Company Number: 2003165824US

PATIENT

DRUGS (1)
  1. CAMPTOSAR [Suspect]
     Dosage: 500 MG, CYCLIC, Q 3 WKS, IV
     Route: 042

REACTIONS (2)
  - MUSCLE TWITCHING [None]
  - TREMOR [None]
